FAERS Safety Report 20438603 (Version 1)
Quarter: 2022Q1

REPORT INFORMATION
  Report Type: Spontaneous
  Country: CH (occurrence: CH)
  Receive Date: 20220207
  Receipt Date: 20220207
  Transmission Date: 20220423
  Serious: Yes (Life-Threatening, Hospitalization, Other)
  Sender: FDA-Public Use
  Company Number: None

PATIENT
  Age: 27 Year
  Sex: Male

DRUGS (9)
  1. DOXORUBICIN HYDROCHLORIDE [Suspect]
     Active Substance: DOXORUBICIN HYDROCHLORIDE
     Indication: Desmoplastic small round cell tumour
     Dosage: 75 MG GLUCOSE 5%, IN TOTAL
     Route: 042
     Dates: start: 20210222, end: 20210222
  2. DOXORUBICIN HYDROCHLORIDE [Suspect]
     Active Substance: DOXORUBICIN HYDROCHLORIDE
     Dosage: 75 MG GLUCOSE 5%, IN TOTAL
     Route: 042
     Dates: start: 20210223, end: 20210223
  3. VINCRISTINE SULFATE [Suspect]
     Active Substance: VINCRISTINE SULFATE
     Indication: Desmoplastic small round cell tumour
     Dosage: 2 MG IN 0.9% NACL, IN TOTAL
     Route: 042
     Dates: start: 20210222, end: 20210222
  4. MESNA [Suspect]
     Active Substance: MESNA
     Indication: Desmoplastic small round cell tumour
     Dosage: 600 MG, IN TOTAL
     Route: 042
     Dates: start: 20210222, end: 20210222
  5. CYCLOPHOSPHAMIDE [Suspect]
     Active Substance: CYCLOPHOSPHAMIDE
     Indication: Desmoplastic small round cell tumour
     Dosage: 2500 MG IN 0.9% NACL, IN TOTAL
     Route: 042
     Dates: start: 20210222, end: 20210222
  6. NOVALGIN (METAMIZOLE SODIUM) [Suspect]
     Active Substance: METAMIZOLE SODIUM
     Indication: Pain
     Dosage: 1 DF, WAS PRESCRIBED AS A RESERVE MEDICATION FOR PAIN ON 24FEB2021, BUT NOT KNOWN IF IT WAS TAKEN
     Route: 048
     Dates: start: 20210224, end: 20210224
  7. PANTOPRAZOLE [Concomitant]
     Active Substance: PANTOPRAZOLE
     Dosage: 40 MG, Q24 HRS (1-0-0), AT HOSPITAL ADMISSION ON 02MAR2021, SINCE UNK DATE UNTIL FURTHER NOTICE
     Route: 048
  8. ALLOPURINOL [Concomitant]
     Active Substance: ALLOPURINOL
     Dosage: 100 MG, Q24 HRS (0-0-1), AT HOSPITAL ADMISSION ON 02MAR2021, SINCE UNK DATE UNTIL FURTHER NOTICE
     Route: 048
  9. DAFALGAN [Concomitant]
     Active Substance: ACETAMINOPHEN
     Indication: Pain
     Dosage: 1 DF, AS NEEDED, AT HOSPITAL ADMISSION ON 02MAR2021, SINCE UNK DATE UNTIL FURTHER NOTICE
     Route: 048

REACTIONS (3)
  - Agranulocytosis [Recovered/Resolved]
  - Febrile neutropenia [Recovered/Resolved]
  - Off label use [Unknown]

NARRATIVE: CASE EVENT DATE: 20210222
